FAERS Safety Report 10420052 (Version 3)
Quarter: 2014Q4

REPORT INFORMATION
  Report Type: Report from Study
  Country: AT (occurrence: AT)
  Receive Date: 20140829
  Receipt Date: 20141015
  Transmission Date: 20150528
  Serious: Yes (Death, Other)
  Sender: FDA-Public Use
  Company Number: AT-B.I. PHARMACEUTICALS,INC./RIDGEFIELD-2014-BI-32014BE

PATIENT
  Age: 74 Year
  Sex: Female

DRUGS (1)
  1. PRADAXA [Suspect]
     Active Substance: DABIGATRAN ETEXILATE MESYLATE
     Indication: VENTRICULAR FIBRILLATION
     Dosage: 220 MG
     Route: 048
     Dates: start: 20120801, end: 20140304

REACTIONS (7)
  - Sepsis [Unknown]
  - Post procedural haemorrhage [Fatal]
  - Colitis ischaemic [Fatal]
  - Multi-organ failure [Unknown]
  - Peritonitis [Fatal]
  - Large intestinal obstruction [Unknown]
  - Procedural haemorrhage [Unknown]

NARRATIVE: CASE EVENT DATE: 20140305
